FAERS Safety Report 19807034 (Version 1)
Quarter: 2021Q3

REPORT INFORMATION
  Report Type: Spontaneous
  Country: CA (occurrence: CA)
  Receive Date: 20210909
  Receipt Date: 20210909
  Transmission Date: 20211014
  Serious: Yes (Other)
  Sender: FDA-Public Use
  Company Number: CA-MICRO LABS LIMITED-ML2021-02162

PATIENT
  Age: 62 Year
  Sex: Female

DRUGS (2)
  1. CELECOXIB. [Suspect]
     Active Substance: CELECOXIB
     Dates: end: 20190901
  2. DURVALUMAB. [Suspect]
     Active Substance: DURVALUMAB
     Dates: start: 20170501

REACTIONS (1)
  - Pemphigoid [Unknown]
